FAERS Safety Report 24265542 (Version 1)
Quarter: 2024Q3

REPORT INFORMATION
  Report Type: Spontaneous
  Country: GB (occurrence: GB)
  Receive Date: 20240829
  Receipt Date: 20240829
  Transmission Date: 20241017
  Serious: Yes (Disabling, Other)
  Sender: CHATTEM
  Company Number: None

PATIENT
  Age: 39 Year
  Sex: Female
  Weight: 73 kg

DRUGS (1)
  1. ALLEGRA [Suspect]
     Active Substance: FEXOFENADINE HYDROCHLORIDE
     Indication: Chronic spontaneous urticaria
     Dosage: 180 PER DAY
     Dates: start: 20240203, end: 20240625

REACTIONS (2)
  - Appetite disorder [Not Recovered/Not Resolved]
  - Medication error [Unknown]

NARRATIVE: CASE EVENT DATE: 20240529
